FAERS Safety Report 11003546 (Version 1)
Quarter: 2015Q2

REPORT INFORMATION
  Report Type: Spontaneous
  Country: US (occurrence: US)
  Receive Date: 20150409
  Receipt Date: 20150409
  Transmission Date: 20150821
  Serious: Yes (Death, Hospitalization)
  Sender: FDA-Public Use
  Company Number: US-SUN PHARMACEUTICAL INDUSTRIES LTD-2015US-95233

PATIENT
  Age: 64 Year
  Sex: Male

DRUGS (1)
  1. PARACETAMOL [Suspect]
     Active Substance: ACETAMINOPHEN
     Indication: PRODUCT USED FOR UNKNOWN INDICATION
     Dosage: UNK
     Route: 065

REACTIONS (7)
  - Hepatic failure [Unknown]
  - Toxicity to various agents [Unknown]
  - Intentional overdose [Unknown]
  - Hepatic encephalopathy [Not Recovered/Not Resolved]
  - Blood creatinine increased [Unknown]
  - International normalised ratio increased [Unknown]
  - Death [Fatal]
